FAERS Safety Report 5589482-X (Version None)
Quarter: 2008Q1

REPORT INFORMATION
  Report Type: 
  Country: None (occurrence: None)
  Receive Date: 20080114
  Receipt Date: 20080109
  Transmission Date: 20080703
  Serious: Yes (Other)
  Sender: FDA-Public Use
  Company Number: CA-JNJFOC-20080102212

PATIENT
  Sex: Male
  Weight: 105 kg

DRUGS (4)
  1. REMICADE [Suspect]
     Route: 042
  2. REMICADE [Suspect]
     Indication: CROHN'S DISEASE
     Route: 042
  3. BENADRYL [Concomitant]
     Indication: PREMEDICATION
     Route: 048
  4. PREDNISONE TAB [Concomitant]
     Indication: PREMEDICATION
     Route: 048

REACTIONS (1)
  - MOVEMENT DISORDER [None]
